FAERS Safety Report 19094756 (Version 1)
Quarter: 2021Q2

REPORT INFORMATION
  Report Type: Other
  Country: ES (occurrence: ES)
  Receive Date: 20210405
  Receipt Date: 20210405
  Transmission Date: 20210717
  Serious: Yes (Life-Threatening)
  Sender: FDA-Public Use
  Company Number: ES-VALIDUS PHARMACEUTICALS LLC-ES-2021VAL000996

PATIENT
  Age: 8 Month
  Sex: Male

DRUGS (3)
  1. CEFOTAXIME SODIUM [Suspect]
     Active Substance: CEFOTAXIME SODIUM
     Indication: MASTOIDITIS
     Dosage: 735 MG, Q6H
     Route: 042
     Dates: start: 20190205, end: 20190208
  2. CLOXACILLIN [Suspect]
     Active Substance: CLOXACILLIN
     Indication: MASTOIDITIS
     Dosage: 500 MG, Q6H
     Route: 042
     Dates: start: 20190205, end: 20190208
  3. IBUPROFEN. [Suspect]
     Active Substance: IBUPROFEN
     Indication: PYREXIA
     Dosage: 50 MG, QD
     Route: 048
     Dates: start: 20190205, end: 20190207

REACTIONS (1)
  - Agranulocytosis [Recovered/Resolved]

NARRATIVE: CASE EVENT DATE: 20190208
